FAERS Safety Report 6086880-5 (Version None)
Quarter: 2009Q1

REPORT INFORMATION
  Report Type: 
  Country: None (occurrence: None)
  Receive Date: 20090223
  Receipt Date: 20090209
  Transmission Date: 20090719
  Serious: Yes (Other)
  Sender: FDA-Public Use
  Company Number: US-ELI_LILLY_AND_COMPANY-US200902001561

PATIENT
  Sex: Female

DRUGS (3)
  1. FORTEO [Suspect]
     Dates: start: 20081007
  2. VITAMINS [Concomitant]
  3. AMBIEN [Concomitant]
     Indication: INSOMNIA

REACTIONS (2)
  - DECREASED ACTIVITY [None]
  - FAILURE OF IMPLANT [None]
